FAERS Safety Report 4414366-X (Version None)
Quarter: 2004Q2

REPORT INFORMATION
  Report Type: 
  Country: None (occurrence: None)
  Receive Date: 20040630
  Receipt Date: 20040303
  Transmission Date: 20050107
  Serious: No
  Sender: FDA-Public Use
  Company Number: 04P-163-0252117-00

PATIENT
  Age: 32 Year
  Sex: Female
  Weight: 86.1834 kg

DRUGS (8)
  1. HUMIRA [Suspect]
     Indication: RHEUMATOID ARTHRITIS
     Dosage: 40 MG, 1 IN 2 WK, SUBCUTANEOUS;  40 MG, 1 IN 1 WK, SC;  40 MG, 1 IN 1 WK, SC
     Route: 058
     Dates: start: 20030401, end: 20031101
  2. HUMIRA [Suspect]
     Indication: RHEUMATOID ARTHRITIS
     Dosage: 40 MG, 1 IN 2 WK, SUBCUTANEOUS;  40 MG, 1 IN 1 WK, SC;  40 MG, 1 IN 1 WK, SC
     Route: 058
     Dates: start: 20031101, end: 20031201
  3. HUMIRA [Suspect]
     Indication: RHEUMATOID ARTHRITIS
     Dosage: 40 MG, 1 IN 2 WK, SUBCUTANEOUS;  40 MG, 1 IN 1 WK, SC;  40 MG, 1 IN 1 WK, SC
     Route: 058
     Dates: start: 20031201
  4. METHOTREXATE [Concomitant]
  5. MELOXICAM [Concomitant]
  6. PREDNISONE TAB [Concomitant]
  7. FOLIC ACID [Concomitant]
  8. VICODIN [Concomitant]

REACTIONS (3)
  - LYMPHADENOPATHY [None]
  - PAIN [None]
  - SINUSITIS [None]
